FAERS Safety Report 16083443 (Version 1)
Quarter: 2019Q1

REPORT INFORMATION
  Report Type: Spontaneous
  Country: US (occurrence: US)
  Receive Date: 20190318
  Receipt Date: 20190318
  Transmission Date: 20190418
  Serious: Yes (Other)
  Sender: FDA-Public Use
  Company Number: US-BAYER-2019-049349

PATIENT
  Age: 71 Year
  Sex: Female
  Weight: 83.9 kg

DRUGS (2)
  1. BAYER ASPIRIN [Suspect]
     Active Substance: ASPIRIN
     Indication: HEADACHE
  2. BAYER ASPIRIN [Suspect]
     Active Substance: ASPIRIN
     Indication: PAIN
     Dosage: 1 DF, ONCE
     Route: 048
     Dates: start: 1968, end: 1968

REACTIONS (3)
  - Dyspnoea [Unknown]
  - Aspirin-exacerbated respiratory disease [None]
  - Anaphylactic shock [Unknown]

NARRATIVE: CASE EVENT DATE: 1968
